FAERS Safety Report 6133481-6 (Version None)
Quarter: 2009Q1

REPORT INFORMATION
  Report Type: 
  Country: None (occurrence: None)
  Receive Date: 20090324
  Receipt Date: 20090324
  Transmission Date: 20090719
  Serious: Yes (Other)
  Sender: FDA-Public Use
  Company Number: None

PATIENT
  Sex: Male

DRUGS (1)
  1. TRIAMCINOLONE ACETONIDE [Suspect]
     Indication: RASH
     Dosage: 480GM THREE TIMES DAILY TOP
     Route: 061
     Dates: start: 20090313, end: 20090318

REACTIONS (3)
  - PRODUCT QUALITY ISSUE [None]
  - SKIN DISCOLOURATION [None]
  - SKIN EXFOLIATION [None]
